FAERS Safety Report 8186114-1 (Version None)
Quarter: 2012Q1

REPORT INFORMATION
  Report Type: 
  Country: None (occurrence: None)
  Receive Date: 20120301
  Receipt Date: 20120220
  Transmission Date: 20120608
  Serious: Yes (Hospitalization)
  Sender: FDA-Public Use
  Company Number: FK201102604

PATIENT
  Age: 53 Year
  Sex: Male

DRUGS (6)
  1. LIDOCAINE [Suspect]
     Indication: PRODUCT USED FOR UNKNOWN INDICATION
     Dates: start: 20110607
  2. TRUVADA PRODUCT USED FOR UNKNOWN INDICATION [Concomitant]
  3. PROPOFOL [Suspect]
     Indication: ANAESTHESIA
     Dosage: , 250 MG TITRATED THROUGHOUT PROCEDURE, INTRAVENOUS BOLUS
     Route: 040
     Dates: start: 20110607, end: 20110607
  4. BENAZEPRIL (BENAZEPRIL) PRODUCT USED FOR UNKNOWN INDICATION [Concomitant]
  5. AMLODIPINE (AMLODIPINE) PRODUCT USED FOR UNKNOWN INDICATION [Concomitant]
  6. VIRAMUNE (NEVIRAPINE) PRODUCT USED FOR UNKNOWN INDICATION [Concomitant]

REACTIONS (3)
  - BLOOD CULTURE POSITIVE [None]
  - ACINETOBACTER INFECTION [None]
  - PSEUDOMONAS INFECTION [None]
